FAERS Safety Report 7935444-4 (Version None)
Quarter: 2011Q4

REPORT INFORMATION
  Report Type: 
  Country: None (occurrence: None)
  Receive Date: 20111122
  Receipt Date: 20111118
  Transmission Date: 20120403
  Serious: Yes (Life-Threatening, Hospitalization)
  Sender: FDA-Public Use
  Company Number: JP-JNJFOC-20100601016

PATIENT
  Sex: Female
  Weight: 55 kg

DRUGS (12)
  1. LIPITOR [Concomitant]
     Indication: HYPERLIPIDAEMIA
     Route: 048
     Dates: start: 20091027, end: 20100606
  2. GOLIMUMAB [Suspect]
     Indication: RHEUMATOID ARTHRITIS
     Route: 058
     Dates: start: 20100511
  3. ADOFEED [Concomitant]
     Indication: RHEUMATOID ARTHRITIS
     Route: 062
     Dates: start: 20100413, end: 20100606
  4. GOLIMUMAB [Suspect]
     Route: 058
     Dates: start: 20100216
  5. FAMOTIDINE [Concomitant]
     Indication: GASTRITIS PROPHYLAXIS
     Route: 048
     Dates: start: 20090421, end: 20100606
  6. PREDNISOLONE [Suspect]
     Indication: RHEUMATOID ARTHRITIS
     Route: 048
     Dates: end: 20100606
  7. GOLIMUMAB [Suspect]
     Route: 058
     Dates: start: 20081226
  8. GOLIMUMAB [Suspect]
     Route: 058
     Dates: start: 20100413
  9. METHOTREXATE [Suspect]
     Indication: RHEUMATOID ARTHRITIS
     Route: 048
     Dates: end: 20100528
  10. GOLIMUMAB [Suspect]
     Route: 058
     Dates: start: 20100316
  11. LOXOPROFEN [Concomitant]
     Indication: RHEUMATOID ARTHRITIS
     Route: 048
     Dates: start: 20081202, end: 20100606
  12. FOLIC ACID [Concomitant]
     Indication: PROPHYLAXIS
     Route: 048
     Dates: end: 20100523

REACTIONS (3)
  - ACUTE RESPIRATORY DISTRESS SYNDROME [None]
  - INTERSTITIAL LUNG DISEASE [None]
  - PNEUMONIA PNEUMOCOCCAL [None]
